FAERS Safety Report 19372690 (Version 1)
Quarter: 2021Q2

REPORT INFORMATION
  Report Type: Spontaneous
  Country: CZ (occurrence: CZ)
  Receive Date: 20210604
  Receipt Date: 20210604
  Transmission Date: 20210717
  Serious: Yes (Other)
  Sender: FDA-Public Use
  Company Number: CZ-AUROBINDO-AUR-APL-2021-023595

PATIENT
  Age: 66 Year
  Sex: Male

DRUGS (13)
  1. CLONAZEPAM. [Concomitant]
     Active Substance: CLONAZEPAM
     Dosage: 3 MILLIGRAM, ONCE A DAY(1 MILLIGRAM, 3X/DAY (TID))
     Route: 065
  2. CLONAZEPAM. [Concomitant]
     Active Substance: CLONAZEPAM
     Indication: PRODUCT USED FOR UNKNOWN INDICATION
     Dosage: 4 MILLIGRAM, ONCE A DAY(2 MILLIGRAM, 2X/DAY (BID))
     Route: 065
  3. VALPROATE SODIUM. [Concomitant]
     Active Substance: VALPROATE SODIUM
     Dosage: 2400 MILLIGRAM, ONCE A DAY
     Route: 065
     Dates: start: 201303
  4. LEVETIRACETAM. [Suspect]
     Active Substance: LEVETIRACETAM
     Indication: SEIZURE
     Dosage: 2000 MILLIGRAM, ONCE A DAY
     Route: 065
     Dates: start: 201210, end: 2013
  5. CLONAZEPAM. [Concomitant]
     Active Substance: CLONAZEPAM
     Dosage: 6 MILLIGRAM, ONCE A DAY(2 MILLIGRAM, 3X/DAY (TID))
     Route: 065
     Dates: start: 2009
  6. VALPROATE SODIUM. [Concomitant]
     Active Substance: VALPROATE SODIUM
     Dosage: 1800 MILLIGRAM, ONCE A DAY(900 MILLIGRAM, 2X/DAY (BID))
     Route: 065
     Dates: start: 201005
  7. VALPROATE SODIUM. [Concomitant]
     Active Substance: VALPROATE SODIUM
     Dosage: 600 MILLIGRAM, ONCE A DAY(300 MILLIGRAM, 2X/DAY (BID))
     Route: 065
     Dates: start: 201303
  8. VALPROATE SODIUM. [Concomitant]
     Active Substance: VALPROATE SODIUM
     Dosage: 900 MILLIGRAM, ONCE A DAY(450 MILLIGRAM, 2X/DAY (BID))
     Route: 065
     Dates: start: 201505, end: 201511
  9. VALPROATE SODIUM. [Concomitant]
     Active Substance: VALPROATE SODIUM
     Dosage: 1200 MILLIGRAM, DAILY(1200MG DAILY)
     Route: 065
     Dates: start: 201303
  10. LEVETIRACETAM. [Suspect]
     Active Substance: LEVETIRACETAM
     Dosage: 3000 MILLIGRAM, ONCE A DAY
     Route: 065
     Dates: start: 2013, end: 202008
  11. LEVETIRACETAM. [Suspect]
     Active Substance: LEVETIRACETAM
     Dosage: 2500 MILLIGRAM, ONCE A DAY
     Route: 065
     Dates: start: 2013, end: 2013
  12. BRIVARACETAM [Suspect]
     Active Substance: BRIVARACETAM
     Indication: PRODUCT USED FOR UNKNOWN INDICATION
     Dosage: 50 MILLIGRAM, ONCE A DAY
     Route: 065
     Dates: start: 202008
  13. VALPROATE SODIUM. [Concomitant]
     Active Substance: VALPROATE SODIUM
     Indication: PRODUCT USED FOR UNKNOWN INDICATION
     Dosage: 1200 MILLIGRAM, ONCE A DAY(600 MILLIGRAM, 2X/DAY (BID)
     Route: 065

REACTIONS (3)
  - Limb injury [Recovered/Resolved]
  - Product use issue [Unknown]
  - Seizure [Recovered/Resolved]

NARRATIVE: CASE EVENT DATE: 201303
